FAERS Safety Report 9762819 (Version 2)
Quarter: 2013Q4

REPORT INFORMATION
  Report Type: Spontaneous
  Country: US (occurrence: US)
  Receive Date: 20131216
  Receipt Date: 20131223
  Transmission Date: 20140711
  Serious: No
  Sender: FDA-Public Use
  Company Number: US-GILEAD-2013-0090060

PATIENT
  Sex: Female

DRUGS (17)
  1. LETAIRIS [Suspect]
     Indication: PULMONARY HYPERTENSION
     Dosage: 10 MG, QD
     Route: 065
     Dates: start: 20110214
  2. LETAIRIS [Suspect]
     Indication: SCLERODERMA
  3. ASPIRIN [Concomitant]
  4. FLONASE                            /00972202/ [Concomitant]
  5. FUROSEMIDE [Concomitant]
  6. HYDROCHLOROTHIAZIDE [Concomitant]
  7. LOSARTAN [Concomitant]
  8. OMEPRAZOLE [Concomitant]
  9. POTASSIUM CHLORIDE [Concomitant]
  10. SLOW RELEASE IRON [Concomitant]
  11. TRAMADOL [Concomitant]
  12. VENLAFAXINE [Concomitant]
  13. PROBIOTICS NOS [Concomitant]
  14. FISH OIL [Concomitant]
  15. MULTIVITAMIN                       /07504101/ [Concomitant]
  16. VITAMIN B COMPLEX [Concomitant]
  17. VITAMIN D 2000 [Concomitant]

REACTIONS (2)
  - Tympanic membrane perforation [Unknown]
  - Gastric disorder [Unknown]
